FAERS Safety Report 9556898 (Version 1)
Quarter: 2013Q3

REPORT INFORMATION
  Report Type: Spontaneous
  Country: CN (occurrence: CN)
  Receive Date: 20130926
  Receipt Date: 20130926
  Transmission Date: 20140515
  Serious: Yes (Hospitalization)
  Sender: FDA-Public Use
  Company Number: CN-PFIZER INC-2013274709

PATIENT
  Age: 17 Year
  Sex: Male

DRUGS (1)
  1. ADRIAMYCIN [Suspect]
     Indication: CHEMOTHERAPY
     Dosage: 40 MG, 1X/DAY
     Route: 042
     Dates: start: 20120109, end: 20120111

REACTIONS (2)
  - Bone marrow failure [Recovering/Resolving]
  - Hepatocellular injury [Recovering/Resolving]
